FAERS Safety Report 14531274 (Version 1)
Quarter: 2018Q1

REPORT INFORMATION
  Report Type: Spontaneous
  Country: NG (occurrence: NG)
  Receive Date: 20180214
  Receipt Date: 20180214
  Transmission Date: 20180509
  Serious: Yes (Hospitalization, Other)
  Sender: FDA-Public Use
  Company Number: NG-JNJFOC-20180215424

PATIENT
  Age: 59 Year
  Sex: Female
  Weight: 70 kg

DRUGS (1)
  1. XARELTO [Suspect]
     Active Substance: RIVAROXABAN
     Indication: INTRACARDIAC THROMBUS
     Route: 048
     Dates: start: 20180122

REACTIONS (3)
  - Off label use [Unknown]
  - Cardiac failure acute [Recovered/Resolved with Sequelae]
  - Product use in unapproved indication [Unknown]
